FAERS Safety Report 10823753 (Version 1)
Quarter: 2015Q1

REPORT INFORMATION
  Report Type: Spontaneous
  Country: US (occurrence: None)
  Receive Date: 20150218
  Receipt Date: 20150218
  Transmission Date: 20150721
  Serious: Yes (Disabling, Other)
  Sender: FDA-Public Use
  Company Number: None

PATIENT
  Age: 35 Year
  Sex: Female
  Weight: 63.5 kg

DRUGS (1)
  1. ACYCLOVIR 400 MG [Suspect]
     Active Substance: ACYCLOVIR
     Indication: HERPES SIMPLEX
     Dosage: 3 PILLS ONCE DAILY
     Route: 048
     Dates: start: 20150206, end: 20150206

REACTIONS (6)
  - Drug ineffective [None]
  - Adverse drug reaction [None]
  - Product substitution issue [None]
  - Drug hypersensitivity [None]
  - General symptom [None]
  - Product quality issue [None]

NARRATIVE: CASE EVENT DATE: 20150206
